FAERS Safety Report 9308991 (Version 2)
Quarter: 2013Q3

REPORT INFORMATION
  Report Type: Spontaneous
  Country: DE (occurrence: DE)
  Receive Date: 20130524
  Receipt Date: 20130709
  Transmission Date: 20140515
  Serious: Yes (Death, Other)
  Sender: FDA-Public Use
  Company Number: DE-ALEXION-A201301121

PATIENT
  Age: 29 Year
  Sex: Male

DRUGS (6)
  1. SOLIRIS 300MG [Suspect]
     Indication: HAEMOLYTIC URAEMIC SYNDROME
     Dosage: 900 MG, QW
     Route: 042
     Dates: start: 20130316, end: 20130403
  2. SOLIRIS 300MG [Suspect]
     Dosage: 1200 MG, Q2W
     Route: 042
     Dates: start: 20130411
  3. VALSARTAN [Concomitant]
     Indication: HYPOTENSION
     Dosage: 160 MG
     Route: 048
  4. BISOPROLOL [Concomitant]
     Indication: HYPOTENSION
     Dosage: 2X5 MG
     Route: 048
  5. AMLODIPINE [Concomitant]
     Indication: HYPOTENSION
     Dosage: 2X5 MG
     Route: 048
  6. XIPAMID [Concomitant]
     Indication: RENAL FAILURE CHRONIC
     Dosage: 40 MG
     Route: 048

REACTIONS (4)
  - Cardiac failure [Fatal]
  - Myocardial infarction [Unknown]
  - Dehydration [Unknown]
  - Fluid overload [Unknown]
